FAERS Safety Report 21380940 (Version 3)
Quarter: 2022Q4

REPORT INFORMATION
  Report Type: Spontaneous
  Country: CN (occurrence: CN)
  Receive Date: 20220927
  Receipt Date: 20221006
  Transmission Date: 20230112
  Serious: Yes (Hospitalization)
  Sender: FDA-Public Use
  Company Number: CN-BRISTOL-MYERS SQUIBB COMPANY-2022-111058

PATIENT
  Age: 65 Year
  Sex: Male

DRUGS (1)
  1. OPDIVO [Suspect]
     Active Substance: NIVOLUMAB
     Indication: Adenocarcinoma gastric
     Dosage: DOSE : 300MG;     FREQ : EVERY 21 DAYS?STRENGTH:  100MG/10ML,
     Route: 041
     Dates: start: 202207

REACTIONS (3)
  - Platelet count decreased [Unknown]
  - Intentional product use issue [Unknown]
  - Product dose omission issue [Unknown]

NARRATIVE: CASE EVENT DATE: 20220101
